FAERS Safety Report 24209403 (Version 1)
Quarter: 2024Q3

REPORT INFORMATION
  Report Type: Spontaneous
  Country: IT (occurrence: IT)
  Receive Date: 20240814
  Receipt Date: 20240814
  Transmission Date: 20241017
  Serious: Yes (Hospitalization, Other)
  Sender: RANBAXY
  Company Number: IT-SUN PHARMACEUTICAL INDUSTRIES LTD-2024R1-462215

PATIENT
  Age: 39 Year
  Sex: Male

DRUGS (5)
  1. METHYLPREDNISOLONE [Suspect]
     Active Substance: METHYLPREDNISOLONE
     Indication: Immune-mediated hepatitis
     Dosage: 1 MILLIGRAM/KILOGRAM
     Route: 065
  2. MYCOPHENOLATE MOFETIL [Suspect]
     Active Substance: MYCOPHENOLATE MOFETIL
     Indication: Immune-mediated hepatitis
     Dosage: 500 MILLIGRAM, BID
     Route: 065
  3. SULFAMETHOXAZOLE\TRIMETHOPRIM [Suspect]
     Active Substance: SULFAMETHOXAZOLE\TRIMETHOPRIM
     Indication: Immune-mediated hepatitis
     Route: 065
  4. URSODIOL [Suspect]
     Active Substance: URSODIOL
     Indication: Immune-mediated hepatitis
     Dosage: 300 MILLIGRAM, TID
     Route: 065
  5. CANRENONE [Suspect]
     Active Substance: CANRENONE
     Indication: Immune-mediated hepatitis
     Dosage: 100 MILLIGRAM, BID
     Route: 065

REACTIONS (1)
  - Treatment failure [Unknown]
